FAERS Safety Report 8131003-1 (Version None)
Quarter: 2012Q1

REPORT INFORMATION
  Report Type: 
  Country: None (occurrence: None)
  Receive Date: 20120213
  Receipt Date: 20120207
  Transmission Date: 20120608
  Serious: Yes (Hospitalization)
  Sender: FDA-Public Use
  Company Number: NL-BAYER-2012-012019

PATIENT
  Age: 30 Year
  Sex: Female
  Weight: 55 kg

DRUGS (2)
  1. NASONEX [Concomitant]
     Dosage: 1 DF, QD
     Dates: start: 20110901
  2. MIRENA [Suspect]
     Indication: MENSTRUAL DISORDER
     Dosage: 20 MCG/24HR, CONT
     Route: 015
     Dates: start: 20111212, end: 20120123

REACTIONS (5)
  - MIGRAINE [None]
  - ABDOMINAL PAIN UPPER [None]
  - ERYTHEMA [None]
  - OPTIC NEURITIS [None]
  - MENSTRUAL DISORDER [None]
